FAERS Safety Report 10079718 (Version 1)
Quarter: 2014Q2

REPORT INFORMATION
  Report Type: Spontaneous
  Country: US (occurrence: US)
  Receive Date: 20140415
  Receipt Date: 20140415
  Transmission Date: 20141212
  Serious: No
  Sender: FDA-Public Use
  Company Number: US-TEVA-470244USA

PATIENT
  Sex: Female

DRUGS (1)
  1. TRIAMCINOLONE [Suspect]
     Indication: HYPERSENSITIVITY
     Dosage: 55 MCG /17 G

REACTIONS (3)
  - Nasal congestion [Unknown]
  - Migraine [Unknown]
  - Drug ineffective [Unknown]
